FAERS Safety Report 12784427 (Version 1)
Quarter: 2016Q3

REPORT INFORMATION
  Report Type: Spontaneous
  Country: US (occurrence: US)
  Receive Date: 20160927
  Receipt Date: 20160927
  Transmission Date: 20161109
  Serious: No
  Sender: FDA-Public Use
  Company Number: US-TEVA-695918USA

PATIENT
  Sex: Female

DRUGS (18)
  1. FLONASE [Concomitant]
     Active Substance: FLUTICASONE PROPIONATE
  2. TRAMADOL. [Concomitant]
     Active Substance: TRAMADOL
  3. XANAX [Concomitant]
     Active Substance: ALPRAZOLAM
  4. CYMBALTA [Concomitant]
     Active Substance: DULOXETINE HYDROCHLORIDE
  5. CYCLOBENZAPRINE [Suspect]
     Active Substance: CYCLOBENZAPRINE
     Route: 065
  6. SILYBUM MARIANUM [Concomitant]
     Active Substance: MILK THISTLE
  7. SINGULAIR [Concomitant]
     Active Substance: MONTELUKAST SODIUM
  8. LITHIUM CARBONATE. [Concomitant]
     Active Substance: LITHIUM CARBONATE
  9. ZYRTEC [Concomitant]
     Active Substance: CETIRIZINE HYDROCHLORIDE
     Route: 065
  10. TIZANIDINE HYDROCHLORIDE. [Concomitant]
     Active Substance: TIZANIDINE HYDROCHLORIDE
  11. RANITIDINE HYDROCHLORIDE. [Concomitant]
     Active Substance: RANITIDINE HYDROCHLORIDE
  12. PROVENTIL HFA [Concomitant]
     Active Substance: ALBUTEROL SULFATE
  13. MELOXICAM. [Concomitant]
     Active Substance: MELOXICAM
  14. TEGRETOL [Concomitant]
     Active Substance: CARBAMAZEPINE
  15. LYRICA [Concomitant]
     Active Substance: PREGABALIN
  16. SUPER B COMPLEX [Concomitant]
     Active Substance: CYANOCOBALAMIN\DEXPANTHENOL\NIACINAMIDE\PYRIDOXINE HYDROCHLORIDE\RIBOFLAVIN 5^-PHOSPHATE SODIUM\THIAMINE HYDROCHLORIDE\VITAMIN B COMPLEX
  17. DL-PA-500 [Concomitant]
     Route: 065
  18. GASTROCROM [Concomitant]
     Active Substance: CROMOLYN SODIUM

REACTIONS (1)
  - Hypersensitivity [Unknown]
